FAERS Safety Report 4424397-1 (Version None)
Quarter: 2004Q3

REPORT INFORMATION
  Report Type: 
  Country: None (occurrence: None)
  Receive Date: 20040812
  Receipt Date: 20040803
  Transmission Date: 20050211
  Serious: Yes (Death)
  Sender: FDA-Public Use
  Company Number: FR-JNJFOC-20040801985

PATIENT
  Sex: Male

DRUGS (2)
  1. RISPERDAL CONSTA [Suspect]
     Indication: BORDERLINE PERSONALITY DISORDER
     Route: 030
     Dates: start: 20040403
  2. ZOLOFT [Concomitant]
     Route: 065
     Dates: start: 20040713

REACTIONS (2)
  - COMPLETED SUICIDE [None]
  - WEIGHT INCREASED [None]
